FAERS Safety Report 23371829 (Version 1)
Quarter: 2024Q1

REPORT INFORMATION
  Report Type: Spontaneous
  Country: JP (occurrence: JP)
  Receive Date: 20240105
  Receipt Date: 20240105
  Transmission Date: 20240410
  Serious: Yes (Life-Threatening)
  Sender: FDA-Public Use
  Company Number: JP-PFIZER INC-PV202300207854

PATIENT
  Age: 4 Year
  Sex: Male

DRUGS (2)
  1. SOMATROPIN [Suspect]
     Active Substance: SOMATROPIN
     Indication: Short stature
     Dosage: 0.55 MG X7/WEEK
     Route: 058
     Dates: start: 20220906, end: 20230202
  2. SOMATROPIN [Suspect]
     Active Substance: SOMATROPIN
     Dosage: 0.55 MG X7/WEEK
     Route: 058
     Dates: start: 20230830

REACTIONS (2)
  - Adenoidal hypertrophy [Recovered/Resolved]
  - Disease progression [Recovered/Resolved]

NARRATIVE: CASE EVENT DATE: 20230202
